FAERS Safety Report 18602972 (Version 1)
Quarter: 2020Q4

REPORT INFORMATION
  Report Type: Spontaneous
  Country: US (occurrence: US)
  Receive Date: 20201210
  Receipt Date: 20201210
  Transmission Date: 20210114
  Serious: No
  Sender: FDA-Public Use
  Company Number: US-PERRIGO-20US016449

PATIENT
  Age: 58 Year
  Sex: Female
  Weight: 90.7 kg

DRUGS (2)
  1. ALBUTEROL SULFATE. [Suspect]
     Active Substance: ALBUTEROL SULFATE
     Dosage: 180 MCG, EVERY 4 HOURS
     Route: 055
     Dates: start: 202010
  2. ALBUTEROL SULFATE. [Suspect]
     Active Substance: ALBUTEROL SULFATE
     Indication: CHRONIC OBSTRUCTIVE PULMONARY DISEASE
     Dosage: UNK, EVERY 4 HOURS
     Route: 055
     Dates: start: 202008, end: 202010

REACTIONS (3)
  - Drug administered in wrong device [Not Recovered/Not Resolved]
  - Device delivery system issue [Recovered/Resolved]
  - Accidental exposure to product [Recovered/Resolved]

NARRATIVE: CASE EVENT DATE: 202008
